APPROVED DRUG PRODUCT: ONDANSETRON
Active Ingredient: ONDANSETRON
Strength: 8MG
Dosage Form/Route: TABLET, ORALLY DISINTEGRATING;ORAL
Application: A076810 | Product #002
Applicant: TEVA PHARMACEUTICALS USA INC
Approved: Jun 25, 2007 | RLD: No | RS: No | Type: DISCN